FAERS Safety Report 8428764-0 (Version None)
Quarter: 2012Q2

REPORT INFORMATION
  Report Type: 
  Country: None (occurrence: None)
  Receive Date: 20120612
  Receipt Date: 20120607
  Transmission Date: 20120825
  Serious: Yes (Hospitalization)
  Sender: FDA-Public Use
  Company Number: US-TEVA-342057USA

PATIENT
  Sex: Female
  Weight: 46.308 kg

DRUGS (2)
  1. RITUXIMAB [Concomitant]
     Indication: CHRONIC LYMPHOCYTIC LEUKAEMIA
     Dates: start: 20120507
  2. TREANDA [Suspect]
     Indication: CHRONIC LYMPHOCYTIC LEUKAEMIA
     Route: 042
     Dates: start: 20120507

REACTIONS (9)
  - NEPHROLITHIASIS [None]
  - RENAL FAILURE ACUTE [None]
  - CONSTIPATION [None]
  - FLANK PAIN [None]
  - DYSURIA [None]
  - DECREASED APPETITE [None]
  - VOMITING [None]
  - FLUID RETENTION [None]
  - WHITE BLOOD CELL COUNT DECREASED [None]
